FAERS Safety Report 9867334 (Version 5)
Quarter: 2014Q3

REPORT INFORMATION
  Report Type: Report from Study
  Country: CA (occurrence: CA)
  Receive Date: 20140204
  Receipt Date: 20140715
  Transmission Date: 20150326
  Serious: Yes (Other)
  Sender: FDA-Public Use
  Company Number: CA-ROCHE-1340487

PATIENT
  Sex: Female

DRUGS (11)
  1. PAROXETINE [Concomitant]
     Active Substance: PAROXETINE\PAROXETINE HYDROCHLORIDE
  2. KADCYLA [Suspect]
     Active Substance: ADO-TRASTUZUMAB EMTANSINE
     Indication: HER-2 POSITIVE BREAST CANCER
     Route: 042
     Dates: start: 20140403, end: 20140515
  3. CARBOPLATIN. [Concomitant]
     Active Substance: CARBOPLATIN
  4. FLUOROURACIL. [Concomitant]
     Active Substance: FLUOROURACIL
  5. TAXOTERE [Suspect]
     Active Substance: DOCETAXEL
     Indication: PRODUCT USED FOR UNKNOWN INDICATION
     Route: 065
     Dates: start: 2010
  6. TAXOL [Suspect]
     Active Substance: PACLITAXEL
     Indication: PRODUCT USED FOR UNKNOWN INDICATION
     Route: 065
     Dates: start: 2010, end: 2011
  7. ZOPICLONE [Concomitant]
     Active Substance: ZOPICLONE
  8. EPIRUBICIN [Concomitant]
     Active Substance: EPIRUBICIN
  9. HERCEPTIN [Suspect]
     Active Substance: TRASTUZUMAB
     Indication: HER-2 POSITIVE BREAST CANCER
     Route: 042
     Dates: start: 201009
  10. FRAGMIN [Concomitant]
     Active Substance: DALTEPARIN SODIUM
  11. CYCLOPHOSPHAMIDE. [Concomitant]
     Active Substance: CYCLOPHOSPHAMIDE

REACTIONS (5)
  - Paraesthesia [Recovering/Resolving]
  - Wrong technique in drug usage process [Unknown]
  - Pneumothorax [Unknown]
  - Malignant neoplasm progression [Not Recovered/Not Resolved]
  - Influenza like illness [Not Recovered/Not Resolved]

NARRATIVE: CASE EVENT DATE: 2013
